FAERS Safety Report 4446742-3 (Version None)
Quarter: 2004Q3

REPORT INFORMATION
  Report Type: 
  Country: None (occurrence: None)
  Receive Date: 20040910
  Receipt Date: 20040824
  Transmission Date: 20050211
  Serious: Yes (Hospitalization)
  Sender: FDA-Public Use
  Company Number: 04P-008-0271585-02

PATIENT
  Age: 44 Year
  Sex: Male

DRUGS (19)
  1. RITONAVIR [Suspect]
     Indication: HIV INFECTION
     Dosage: 1 TABLET , 2 IN 1 D, PER ORAL
     Route: 048
     Dates: start: 20040216
  2. TENOFOVIR [Concomitant]
  3. ABACAVIR [Concomitant]
  4. LAMIVUDINE [Concomitant]
  5. ENFLUVIRTIDE [Concomitant]
  6. BACTRIM [Concomitant]
  7. VALPROATE SODIUM [Concomitant]
  8. LOPERAMIDE HYDROCHLORIDE [Concomitant]
  9. VALGANCICLOVIR [Concomitant]
  10. GABAPENTIN [Concomitant]
  11. CLOPIDOGREL BISULFATE [Concomitant]
  12. PYRICARBATE [Concomitant]
  13. ATORVASTATIN CALCIUM [Concomitant]
  14. CITALOPRAM HYDROBROMIDE [Concomitant]
  15. METOPROLOL [Concomitant]
  16. MORPHINE SULFATE [Concomitant]
  17. ASPIRIN [Concomitant]
  18. PANDEINE CO [Concomitant]
  19. FLUCONAZOLE [Concomitant]

REACTIONS (1)
  - VISION BLURRED [None]
